FAERS Safety Report 8462232-5 (Version None)
Quarter: 2012Q2

REPORT INFORMATION
  Report Type: 
  Country: None (occurrence: None)
  Receive Date: 20120625
  Receipt Date: 20120621
  Transmission Date: 20120825
  Serious: Yes (Hospitalization, Other)
  Sender: FDA-Public Use
  Company Number: PHHO2010DE15450

PATIENT
  Sex: Male

DRUGS (4)
  1. MIDAZOLAM [Suspect]
     Indication: CHRONIC MYELOID LEUKAEMIA
     Dosage: UNK
     Dates: start: 20100930
  2. TASIGNA [Suspect]
     Indication: CHRONIC MYELOID LEUKAEMIA
     Dosage: 400 MG, BID
     Route: 048
     Dates: start: 20101001, end: 20101028
  3. TASIGNA [Suspect]
     Dosage: NO TREATMENT RECEIVED
     Dates: start: 20101029, end: 20101111
  4. TASIGNA [Suspect]
     Dosage: 800 MG, QD
     Route: 048
     Dates: start: 20101112, end: 20111020

REACTIONS (5)
  - DIABETIC VASCULAR DISORDER [None]
  - DIABETES MELLITUS [None]
  - IMPAIRED HEALING [None]
  - CONCOMITANT DISEASE PROGRESSION [None]
  - WOUND COMPLICATION [None]
